FAERS Safety Report 5026197-0 (Version None)
Quarter: 2006Q2

REPORT INFORMATION
  Report Type: 
  Country: None (occurrence: None)
  Receive Date: 20060608
  Receipt Date: 20020118
  Transmission Date: 20061013
  Serious: No
  Sender: FDA-Public Use
  Company Number: 2002-01-2055

PATIENT
  Sex: Female
  Weight: 87 kg

DRUGS (1)
  1. ETHYOL [Suspect]
     Indication: BREAST CANCER FEMALE
     Dosage: INTRAVENOUS
     Route: 042
     Dates: start: 20020115, end: 20020115

REACTIONS (4)
  - ERYTHEMA [None]
  - HEART RATE INCREASED [None]
  - HYPERTENSION [None]
  - LOCAL SWELLING [None]
